FAERS Safety Report 5415984-2 (Version None)
Quarter: 2007Q3

REPORT INFORMATION
  Report Type: 
  Country: None (occurrence: None)
  Receive Date: 20070815
  Receipt Date: 20070803
  Transmission Date: 20080115
  Serious: Yes (Hospitalization, Other)
  Sender: FDA-Public Use
  Company Number: US-PFIZER INC-2007066112

PATIENT
  Sex: Male
  Weight: 103.63 kg

DRUGS (13)
  1. CHANTIX [Suspect]
     Indication: SMOKING CESSATION THERAPY
     Route: 048
  2. TOPROL-XL [Concomitant]
     Route: 048
  3. HYDROCHLOROTHIAZIDE [Concomitant]
     Route: 048
  4. NORVASC [Concomitant]
     Route: 048
  5. VALSARTAN [Concomitant]
     Route: 048
  6. PAXIL [Concomitant]
     Route: 048
  7. BENTYL [Concomitant]
     Route: 048
  8. VITAMIN CAP [Concomitant]
     Route: 048
  9. POTASSIUM CHLORIDE [Concomitant]
     Route: 048
  10. TRICOR [Concomitant]
     Route: 048
  11. KLONOPIN [Concomitant]
     Route: 048
  12. PROTONIX [Concomitant]
     Route: 048
  13. NASONEX [Concomitant]
     Route: 045

REACTIONS (6)
  - MALAISE [None]
  - MUSCULOSKELETAL PAIN [None]
  - PHARYNGOLARYNGEAL PAIN [None]
  - ROTATOR CUFF REPAIR [None]
  - STRESS [None]
  - TONGUE DISCOLOURATION [None]
